FAERS Safety Report 8301307-8 (Version None)
Quarter: 2012Q2

REPORT INFORMATION
  Report Type: 
  Country: None (occurrence: None)
  Receive Date: 20120420
  Receipt Date: 20120413
  Transmission Date: 20120825
  Serious: Yes (Hospitalization, Other)
  Sender: FDA-Public Use
  Company Number: AT-ASTRAZENECA-2012SE24215

PATIENT
  Age: 27473 Day
  Sex: Male
  Weight: 106 kg

DRUGS (3)
  1. LOVENOX [Concomitant]
     Indication: PULMONARY EMBOLISM
     Route: 058
     Dates: start: 20040401
  2. ASPIRIN [Concomitant]
     Route: 048
  3. BRILIQUE [Suspect]
     Indication: STENT PLACEMENT
     Route: 048
     Dates: start: 20120320

REACTIONS (2)
  - PULMONARY EMBOLISM [None]
  - PROSTATE CANCER [None]
